FAERS Safety Report 11506999 (Version 2)
Quarter: 2015Q4

REPORT INFORMATION
  Report Type: Spontaneous
  Country: DE (occurrence: DE)
  Receive Date: 20150915
  Receipt Date: 20151116
  Transmission Date: 20160304
  Serious: Yes (Other)
  Sender: FDA-Public Use
  Company Number: DE-BEH-2015053827

PATIENT
  Age: 54 Year
  Sex: Male

DRUGS (1)
  1. PRIVIGEN [Suspect]
     Active Substance: HUMAN IMMUNOGLOBULIN G
     Indication: MULTIFOCAL MOTOR NEUROPATHY
     Dosage: MAINTENANCE TREATMENT; RECEIVING SINCE DIAGNOSIS OF MMN IN 1993. DOSE DISTRIBUTED OVER 2 DAYS.
     Route: 042
     Dates: start: 2010

REACTIONS (1)
  - Testicular infarction [Recovered/Resolved]

NARRATIVE: CASE EVENT DATE: 201407
